FAERS Safety Report 15075017 (Version 2)
Quarter: 2023Q4

REPORT INFORMATION
  Report Type: Spontaneous
  Country: US (occurrence: US)
  Receive Date: 20180627
  Receipt Date: 20231109
  Transmission Date: 20240109
  Serious: Yes (Other)
  Sender: FDA-Public Use
  Company Number: US-SAOL THERAPEUTICS-2017SAO01662

PATIENT
  Age: 50 Year
  Sex: Male
  Weight: 90.703 kg

DRUGS (2)
  1. BACLOFEN [Suspect]
     Active Substance: BACLOFEN
     Indication: Muscle spasticity
     Dosage: 841.6 ?G, \DAY
     Route: 037
  2. CLONIDINE [Suspect]
     Active Substance: CLONIDINE
     Dosage: 357.66 ?G, \DAY
     Route: 037

REACTIONS (4)
  - Drug withdrawal syndrome [Not Recovered/Not Resolved]
  - Hyperhidrosis [Not Recovered/Not Resolved]
  - Blood pressure increased [Not Recovered/Not Resolved]
  - Device failure [Not Recovered/Not Resolved]

NARRATIVE: CASE EVENT DATE: 20171022
